FAERS Safety Report 7428557-7 (Version None)
Quarter: 2011Q2

REPORT INFORMATION
  Report Type: 
  Country: None (occurrence: None)
  Receive Date: 20110412
  Receipt Date: 20110407
  Transmission Date: 20111010
  Serious: Yes (Life-Threatening, Hospitalization, Other)
  Sender: FDA-Public Use
  Company Number: 2010SP023349

PATIENT
  Age: 63 Year
  Sex: Female
  Weight: 57 kg

DRUGS (11)
  1. OXYCODONE [Concomitant]
  2. ZOLPIDEM TARTRATE [Concomitant]
  3. ABT-888 [Suspect]
     Indication: GLIOBLASTOMA MULTIFORME
     Dosage: 10 MG;QD;PO ; 20 MG;BID;PO
     Route: 048
     Dates: start: 20100301, end: 20100301
  4. ABT-888 [Suspect]
     Indication: GLIOBLASTOMA MULTIFORME
     Dosage: 10 MG;QD;PO ; 20 MG;BID;PO
     Route: 048
     Dates: start: 20100302, end: 20100328
  5. DOCUSATE SODIUM [Concomitant]
  6. DEXAMETHASONE [Concomitant]
  7. BISACODYL [Concomitant]
  8. TEMOZOLOMIDE [Suspect]
     Indication: GLIOBLASTOMA MULTIFORME
     Dosage: PO
     Route: 048
     Dates: start: 20100302, end: 20100328
  9. ASPIRIN [Concomitant]
  10. LANOSPRAZOLE [Concomitant]
  11. MACROGEL [Concomitant]

REACTIONS (5)
  - BONE PAIN [None]
  - THROMBOCYTOPENIA [None]
  - INADEQUATE ANALGESIA [None]
  - ARTHRALGIA [None]
  - FEBRILE NEUTROPENIA [None]
